FAERS Safety Report 21385806 (Version 1)
Quarter: 2022Q3

REPORT INFORMATION
  Report Type: Spontaneous
  Country: US (occurrence: None)
  Receive Date: 20220927
  Receipt Date: 20220927
  Transmission Date: 20221027
  Serious: Yes (Life-Threatening, Disabling, Other)
  Sender: FDA-Public Use
  Company Number: None

PATIENT
  Age: 48 Year
  Sex: Female
  Weight: 81.65 kg

DRUGS (25)
  1. NURTEC ODT [Suspect]
     Active Substance: RIMEGEPANT SULFATE
     Indication: Migraine
     Dosage: 1 PILL ONCE EVERY 2 DAYS BY MOUTH
     Route: 048
     Dates: start: 20220915, end: 20220915
  2. INFLUENZA VIRUS VACCINE [Concomitant]
     Active Substance: INFLUENZA VIRUS VACCINE
  3. IODINE [Concomitant]
     Active Substance: IODINE
  4. CANNABIS SATIVA SUBSP. INDICA TOP [Concomitant]
     Active Substance: CANNABIS SATIVA SUBSP. INDICA TOP
  5. SINGULAIR [Concomitant]
     Active Substance: MONTELUKAST SODIUM
  6. XYZAL [Concomitant]
     Active Substance: LEVOCETIRIZINE DIHYDROCHLORIDE
  7. OMEPRAZOLE [Concomitant]
     Active Substance: OMEPRAZOLE
  8. ABILIFY [Concomitant]
     Active Substance: ARIPIPRAZOLE
  9. LEVOMEFOLIC ACID [Concomitant]
     Active Substance: LEVOMEFOLIC ACID
  10. RIZATRIPTAN [Concomitant]
     Active Substance: RIZATRIPTAN
  11. ELETRIPTAN [Concomitant]
     Active Substance: ELETRIPTAN
  12. MELOXICAM [Concomitant]
     Active Substance: MELOXICAM
  13. SKELAXIN [Concomitant]
     Active Substance: METAXALONE
  14. CYCLOBENZAPRINE [Concomitant]
     Active Substance: CYCLOBENZAPRINE
  15. VITAMINS [Concomitant]
     Active Substance: VITAMINS
  16. migraine relief cal mg zn [Concomitant]
  17. advanced nerve support bone and digestive formula [Concomitant]
  18. ACETAMINOPHEN [Concomitant]
     Active Substance: ACETAMINOPHEN
  19. ARIPIPRAZOLE [Concomitant]
     Active Substance: ARIPIPRAZOLE
  20. KETOCONAZOLE [Concomitant]
     Active Substance: KETOCONAZOLE
  21. LEVOCETIRIZINE [Concomitant]
     Active Substance: LEVOCETIRIZINE
  22. MAGNESIUM OXIDE [Concomitant]
     Active Substance: MAGNESIUM OXIDE
  23. MELATONIN [Concomitant]
     Active Substance: MELATONIN
  24. MONTELUKAST [Concomitant]
     Active Substance: MONTELUKAST SODIUM
  25. PROMETHAZINE [Concomitant]
     Active Substance: PROMETHAZINE HYDROCHLORIDE

REACTIONS (2)
  - Seizure [None]
  - Rash [None]

NARRATIVE: CASE EVENT DATE: 20220915
